FAERS Safety Report 6108350-8 (Version None)
Quarter: 2009Q1

REPORT INFORMATION
  Report Type: 
  Country: None (occurrence: None)
  Receive Date: 20090309
  Receipt Date: 20090225
  Transmission Date: 20090719
  Serious: Yes (Hospitalization)
  Sender: FDA-Public Use
  Company Number: JP-PFIZER INC-2009179150

PATIENT

DRUGS (2)
  1. LIPITOR [Suspect]
     Route: 048
  2. WARFARIN [Concomitant]

REACTIONS (1)
  - SUBDURAL HAEMATOMA [None]
